FAERS Safety Report 17994323 (Version 6)
Quarter: 2020Q3

REPORT INFORMATION
  Report Type: Spontaneous
  Country: US (occurrence: US)
  Receive Date: 20200708
  Receipt Date: 20200828
  Transmission Date: 20201103
  Serious: Yes (Other)
  Sender: FDA-Public Use
  Company Number: US-PFIZER INC-2020260230

PATIENT
  Age: 83 Year
  Sex: Female

DRUGS (2)
  1. DONNATAL [Concomitant]
     Active Substance: ATROPINE SULFATE\HYOSCYAMINE SULFATE\PHENOBARBITAL\SCOPOLAMINE HYDROBROMIDE
     Indication: GASTROINTESTINAL DISORDER THERAPY
     Dosage: UNK
     Dates: start: 1966
  2. ALPRAZOLAM. [Suspect]
     Active Substance: ALPRAZOLAM
     Indication: ANXIETY DISORDER
     Dosage: 0.25 MG, AS NEEDED (1 TABLET BY MOUTH IN THE EVENING AS NEEDED)
     Route: 048

REACTIONS (5)
  - Gastric neoplasm [Unknown]
  - Drug ineffective [Unknown]
  - Sleep disorder [Unknown]
  - Neoplasm malignant [Unknown]
  - Drug dependence [Unknown]

NARRATIVE: CASE EVENT DATE: 2018
